FAERS Safety Report 24591269 (Version 2)
Quarter: 2024Q4

REPORT INFORMATION
  Report Type: Spontaneous
  Country: US (occurrence: US)
  Receive Date: 20241108
  Receipt Date: 20241210
  Transmission Date: 20250115
  Serious: No
  Sender: BOEHRINGER INGELHEIM
  Company Number: US-Komodo Health-a23aa0000046XevAAE

PATIENT
  Age: 61 Year
  Sex: Male

DRUGS (1)
  1. CYLTEZO [Suspect]
     Active Substance: ADALIMUMAB-ADBM
     Indication: Product used for unknown indication
     Dosage: 40MG

REACTIONS (2)
  - Injection site haemorrhage [Unknown]
  - Device defective [Unknown]

NARRATIVE: CASE EVENT DATE: 20241103
